FAERS Safety Report 6641624-0 (Version None)
Quarter: 2010Q1

REPORT INFORMATION
  Report Type: 
  Country: None (occurrence: None)
  Receive Date: 20100317
  Receipt Date: 20100317
  Transmission Date: 20100710
  Serious: Yes (Life-Threatening, Hospitalization)
  Sender: FDA-Public Use
  Company Number: None

PATIENT
  Age: 83 Year
  Sex: Female

DRUGS (1)
  1. LUCENTIS [Suspect]
     Indication: MACULAR DEGENERATION
     Dosage: 0.5MG. EVERY 4 WKS INTRAOCULAR
     Route: 031
     Dates: start: 20081001, end: 20100201

REACTIONS (1)
  - CEREBROVASCULAR ACCIDENT [None]
